FAERS Safety Report 7397162-3 (Version None)
Quarter: 2011Q2

REPORT INFORMATION
  Report Type: 
  Country: None (occurrence: None)
  Receive Date: 20110406
  Receipt Date: 20110330
  Transmission Date: 20111010
  Serious: Yes (Other)
  Sender: FDA-Public Use
  Company Number: B0710617A

PATIENT
  Age: 61 Year
  Sex: Male

DRUGS (1)
  1. LAMICTAL [Suspect]
     Indication: EPILEPSY
     Dosage: 350MG PER DAY
     Route: 065
     Dates: start: 20100101

REACTIONS (15)
  - DYSGEUSIA [None]
  - BALANCE DISORDER [None]
  - ANXIETY [None]
  - CONFUSIONAL STATE [None]
  - RASH [None]
  - FATIGUE [None]
  - CLUMSINESS [None]
  - MUSCLE TWITCHING [None]
  - VISUAL ACUITY REDUCED [None]
  - EYE PRURITUS [None]
  - DRY SKIN [None]
  - INTRAOCULAR PRESSURE INCREASED [None]
  - SKIN DISCOLOURATION [None]
  - SLEEP DISORDER [None]
  - IRRITABILITY [None]
